FAERS Safety Report 26105589 (Version 1)
Quarter: 2025Q4

REPORT INFORMATION
  Report Type: Spontaneous
  Country: EU (occurrence: EU)
  Receive Date: 20251201
  Receipt Date: 20251201
  Transmission Date: 20260117
  Serious: Yes (Life-Threatening)
  Sender: AUROBINDO
  Company Number: EU-AFSSAPS-PP2025001186

PATIENT
  Age: 75 Year
  Sex: Female
  Weight: 63 kg

DRUGS (4)
  1. HYDROXYZINE HYDROCHLORIDE [Interacting]
     Active Substance: HYDROXYZINE HYDROCHLORIDE
     Indication: Bone pain
     Dosage: 25 MILLIGRAM, ONCE A DAY (25 MG/DAY)
     Dates: start: 20250101
  2. GABAPENTIN [Interacting]
     Active Substance: GABAPENTIN
     Indication: Bone pain
     Dosage: UNK (300 MG/DAY ON 17/09 AND 18/09/2025. FROM 19/09/2025: 600 MG/DAY)
  3. MORPHINE SULFATE [Interacting]
     Active Substance: MORPHINE SULFATE
     Indication: Bone pain
     Dosage: UNK (23/09/2025 : 5 MG24/09/2025 : 5 MG)
     Dates: start: 20250923, end: 20250924
  4. MORPHINE SULFATE [Interacting]
     Active Substance: MORPHINE SULFATE
     Indication: Bone pain
     Dosage: 10 MILLIGRAM (ONLY RECEIVED 10 MG ON 24/09/2025)

REACTIONS (2)
  - Disturbance in attention [Recovered/Resolved]
  - Dyspnoea [Recovered/Resolved]

NARRATIVE: CASE EVENT DATE: 20250924
